FAERS Safety Report 9694014 (Version 1)
Quarter: 2013Q4

REPORT INFORMATION
  Report Type: Report from Study
  Country: NL (occurrence: NL)
  Receive Date: 20131118
  Receipt Date: 20131118
  Transmission Date: 20140711
  Serious: Yes (Other)
  Sender: FDA-Public Use
  Company Number: NL-BAXTER-2013BAX044488

PATIENT
  Age: 62 Year
  Sex: Male

DRUGS (4)
  1. KIOVIG, 100 MG/ML, OPLOSSING VOOR INFUSIE (30 G/300 ML) [Suspect]
     Indication: CHRONIC INFLAMMATORY DEMYELINATING POLYRADICULONEUROPATHY
     Route: 042
     Dates: start: 20131101, end: 20131101
  2. KIOVIG, 100 MG/ML, OPLOSSING VOOR INFUSIE (30 G/300 ML) [Suspect]
     Indication: OFF LABEL USE
  3. KIOVIG 100 MG/ML OPLOSSING VOOR INFUSIE (20 G/200 ML) [Suspect]
     Indication: CHRONIC INFLAMMATORY DEMYELINATING POLYRADICULONEUROPATHY
     Route: 042
     Dates: start: 20131101, end: 20131101
  4. KIOVIG 100 MG/ML OPLOSSING VOOR INFUSIE (20 G/200 ML) [Suspect]
     Indication: OFF LABEL USE
     Route: 042
     Dates: start: 20100420

REACTIONS (1)
  - Borrelia infection [Unknown]
